FAERS Safety Report 8803980 (Version 2)
Quarter: 2013Q1

REPORT INFORMATION
  Report Type: Spontaneous
  Country: US (occurrence: US)
  Receive Date: 20120924
  Receipt Date: 20130114
  Transmission Date: 20140127
  Serious: No
  Sender: FDA-Public Use
  Company Number: US-PFIZER INC-2012231568

PATIENT
  Sex: Female
  Weight: 72.56 kg

DRUGS (1)
  1. LYRICA [Suspect]
     Indication: HEADACHE
     Dosage: 150 MG, 2X/DAY
     Route: 048
     Dates: start: 2008

REACTIONS (5)
  - Off label use [Unknown]
  - Drug withdrawal syndrome [Unknown]
  - Vomiting [Unknown]
  - Chills [Unknown]
  - Irritability [Unknown]
